FAERS Safety Report 15336132 (Version 4)
Quarter: 2020Q2

REPORT INFORMATION
  Report Type: Spontaneous
  Country: US (occurrence: US)
  Receive Date: 20180830
  Receipt Date: 20200519
  Transmission Date: 20200713
  Serious: No
  Sender: FDA-Public Use
  Company Number: US-PFIZER INC-2018350438

PATIENT
  Age: 83 Year
  Sex: Female

DRUGS (1)
  1. PREMARIN [Suspect]
     Active Substance: ESTROGENS, CONJUGATED
     Indication: BURNING SENSATION
     Dosage: 0.3 MG, 1X/DAY
     Route: 048

REACTIONS (9)
  - Drug effective for unapproved indication [Unknown]
  - Limb discomfort [Unknown]
  - Visual impairment [Unknown]
  - Muscle spasms [Unknown]
  - Memory impairment [Unknown]
  - Hot flush [Unknown]
  - Loss of personal independence in daily activities [Unknown]
  - Off label use [Unknown]
  - Decreased activity [Unknown]
